FAERS Safety Report 6018136-0 (Version None)
Quarter: 2008Q4

REPORT INFORMATION
  Report Type: 
  Country: None (occurrence: None)
  Receive Date: 20081223
  Receipt Date: 20081212
  Transmission Date: 20090506
  Serious: Yes (Death, Other)
  Sender: FDA-Public Use
  Company Number: US-ELI_LILLY_AND_COMPANY-US200810007056

PATIENT
  Sex: Male
  Weight: 61.678 kg

DRUGS (8)
  1. CIALIS [Suspect]
     Indication: PULMONARY HYPERTENSION
     Dosage: 20 MG, UNK
     Route: 065
     Dates: start: 20040101, end: 20080801
  2. ALDACTONE [Concomitant]
     Dosage: UNK, QOD
     Route: 065
  3. LASIX [Concomitant]
     Dosage: 20 MG, QOD
     Route: 065
  4. DILTIAZEM [Concomitant]
     Dosage: 180 MG, DAILY (1/D)
     Route: 065
  5. WARFARIN SODIUM [Concomitant]
     Dosage: UNK, UNKNOWN
     Route: 065
  6. DIGOXIN [Concomitant]
     Dosage: 0.125 UNK, DAILY (1/D)
     Route: 065
  7. FLOMAX [Concomitant]
     Route: 065
  8. ESIDRIX [Concomitant]
     Dosage: 25 MG, UNKNOWN
     Route: 065

REACTIONS (3)
  - CARDIAC FAILURE CONGESTIVE [None]
  - CATARACT [None]
  - VISION BLURRED [None]
